FAERS Safety Report 12174063 (Version 1)
Quarter: 2016Q1

REPORT INFORMATION
  Report Type: Spontaneous
  Country: US (occurrence: None)
  Receive Date: 20160311
  Receipt Date: 20160311
  Transmission Date: 20160526
  Serious: Yes (Other)
  Sender: FDA-Public Use
  Company Number: None

PATIENT
  Age: 25 Month
  Sex: Male
  Weight: 12.5 kg

DRUGS (6)
  1. ACYCLOVIR. [Suspect]
     Active Substance: ACYCLOVIR
     Indication: MENTAL STATUS CHANGES
     Dosage: (20 MG/KG)
     Route: 042
     Dates: start: 20160226, end: 20160229
  2. INTRAVENOUS FLUIDS [Concomitant]
  3. AZITHROMYCIN ANHYDROUS. [Concomitant]
     Active Substance: AZITHROMYCIN ANHYDROUS
  4. CEFTRIAXONE. [Concomitant]
     Active Substance: CEFTRIAXONE
  5. POLYETHYLENE GLYCOL [Concomitant]
     Active Substance: POLYETHYLENE GLYCOLS
  6. LACTOBACILLUS [Concomitant]
     Active Substance: LACTOBACILLUS ACIDOPHILUS

REACTIONS (2)
  - Therapy change [None]
  - Acute kidney injury [None]

NARRATIVE: CASE EVENT DATE: 20160226
